FAERS Safety Report 6596158-9 (Version None)
Quarter: 2010Q1

REPORT INFORMATION
  Report Type: 
  Country: None (occurrence: None)
  Receive Date: 20100219
  Receipt Date: 20100219
  Transmission Date: 20100710
  Serious: Yes (Hospitalization)
  Sender: FDA-Public Use
  Company Number: None

PATIENT
  Age: 59 Year
  Sex: Male

DRUGS (2)
  1. DEXTROSE [Suspect]
     Indication: DEEP VEIN THROMBOSIS
     Dosage: 8000 UNITS ONCE IV
     Route: 042
     Dates: start: 20090510, end: 20090512
  2. WARFARIN SODIUM [Suspect]
     Dosage: 3 MG EVERY DAY PO
     Route: 048
     Dates: start: 20090511, end: 20090513

REACTIONS (1)
  - THROMBOCYTOPENIA [None]
